FAERS Safety Report 17397215 (Version 1)
Quarter: 2020Q1

REPORT INFORMATION
  Report Type: Spontaneous
  Country: US (occurrence: US)
  Receive Date: 20200210
  Receipt Date: 20200210
  Transmission Date: 20200409
  Serious: Yes (Other)
  Sender: FDA-Public Use
  Company Number: US-GW PHARMA-202002USGW00458

PATIENT

DRUGS (3)
  1. EPIDIOLEX [Suspect]
     Active Substance: CANNABIDIOL
     Dosage: DOSE INCREASED
     Route: 048
  2. EPIDIOLEX [Suspect]
     Active Substance: CANNABIDIOL
     Indication: LENNOX-GASTAUT SYNDROME
     Dosage: 510 MILLIGRAM, BID
     Route: 048
     Dates: start: 201905
  3. EPIDIOLEX [Suspect]
     Active Substance: CANNABIDIOL
     Dosage: LOWERING DOSE (UNK)
     Route: 048

REACTIONS (2)
  - Intentional product use issue [Unknown]
  - Seizure [Unknown]
